FAERS Safety Report 9252163 (Version 1)
Quarter: 2013Q2

REPORT INFORMATION
  Report Type: Report from Study
  Country: CA (occurrence: CA)
  Receive Date: 20130424
  Receipt Date: 20130424
  Transmission Date: 20140414
  Serious: Yes (Other)
  Sender: FDA-Public Use
  Company Number: CA-ROCHE-1215521

PATIENT
  Sex: Female

DRUGS (4)
  1. LUCENTIS [Suspect]
     Indication: AGE-RELATED MACULAR DEGENERATION
     Route: 050
     Dates: start: 20090615
  2. LUCENTIS [Suspect]
     Route: 050
  3. AVASTIN [Suspect]
     Indication: PRODUCT USED FOR UNKNOWN INDICATION
     Route: 065
  4. ATIVAN [Concomitant]

REACTIONS (5)
  - Age-related macular degeneration [Recovering/Resolving]
  - Condition aggravated [Recovering/Resolving]
  - Pharyngeal oedema [Recovered/Resolved]
  - Photopsia [Recovered/Resolved]
  - Headache [Recovered/Resolved]
